FAERS Safety Report 26081876 (Version 1)
Quarter: 2025Q4

REPORT INFORMATION
  Report Type: Spontaneous
  Country: US (occurrence: US)
  Receive Date: 20251124
  Receipt Date: 20251124
  Transmission Date: 20260117
  Serious: No
  Sender: ALVOGEN
  Company Number: US-ALVOGEN-2025096408

PATIENT
  Sex: Female

DRUGS (1)
  1. TERIPARATIDE [Suspect]
     Active Substance: TERIPARATIDE
     Indication: Product used for unknown indication
     Dosage: EXPIRATION DATE: SEP-2025?STRENGTH: 620MCG/2.48ML
     Dates: start: 20250204

REACTIONS (3)
  - Liquid product physical issue [Unknown]
  - Poor quality product administered [Unknown]
  - Device use error [Unknown]

NARRATIVE: CASE EVENT DATE: 20250101
